FAERS Safety Report 7739503-0 (Version None)
Quarter: 2011Q3

REPORT INFORMATION
  Report Type: 
  Country: None (occurrence: None)
  Receive Date: 20110909
  Receipt Date: 20110831
  Transmission Date: 20111222
  Serious: Yes (Hospitalization)
  Sender: FDA-Public Use
  Company Number: DE-SANOFI-AVENTIS-2011SA053222

PATIENT
  Age: 58 Year
  Sex: Male

DRUGS (16)
  1. GLYBURIDE [Concomitant]
     Route: 048
  2. RAMIPRIL [Concomitant]
     Indication: HYPERTENSION
     Route: 048
  3. XELODA [Suspect]
     Route: 048
     Dates: end: 20110707
  4. ACETYLSALICYLIC ACID SRT [Concomitant]
     Route: 048
  5. ESIDRIX [Concomitant]
     Route: 048
  6. THERAPEUTIC RADIOPHARMACEUTICALS [Suspect]
     Indication: RECTAL CANCER
  7. BISOPROLOL FUMARATE [Concomitant]
     Indication: HYPERTENSION
     Route: 048
  8. SIMVASTATIN [Concomitant]
     Route: 048
  9. METFORMIN [Concomitant]
     Route: 048
  10. LASIX [Concomitant]
     Indication: HYPERTENSION
     Route: 048
  11. AMLODIPINE [Concomitant]
     Route: 048
  12. OXALIPLATIN [Suspect]
     Indication: RECTAL CANCER
     Route: 042
     Dates: start: 20110509, end: 20110509
  13. OXALIPLATIN [Suspect]
     Route: 042
     Dates: start: 20110606, end: 20110606
  14. ALL OTHER THERAPEUTIC PRODUCTS [Concomitant]
     Route: 048
  15. XELODA [Suspect]
     Indication: RECTAL CANCER
     Route: 048
     Dates: start: 20110509
  16. PANTOPRAZOLE [Concomitant]
     Indication: PROPHYLAXIS
     Route: 048

REACTIONS (2)
  - WOUND INFECTION [None]
  - IMPAIRED HEALING [None]
